FAERS Safety Report 5846265-0 (Version None)
Quarter: 2008Q3

REPORT INFORMATION
  Report Type: 
  Country: None (occurrence: None)
  Receive Date: 20080813
  Receipt Date: 20080804
  Transmission Date: 20090109
  Serious: Yes (Other)
  Sender: FDA-Public Use
  Company Number: 2008AL008803

PATIENT
  Age: 55 Year
  Sex: Male

DRUGS (3)
  1. PROPRANOLOL HCL EXTENDED-RELEASE CAPSULES USP 60MG (AELLC) (PROPRANOLO [Suspect]
     Indication: SENSORY DISTURBANCE
     Dosage: 10 MG;TID;PO
     Route: 048
     Dates: start: 20080525
  2. COPAXONE [Concomitant]
  3. DULOXETINE [Concomitant]

REACTIONS (3)
  - DIZZINESS [None]
  - FOOD INTERACTION [None]
  - MALAISE [None]
